FAERS Safety Report 7079669-1 (Version None)
Quarter: 2010Q4

REPORT INFORMATION
  Report Type: 
  Country: None (occurrence: None)
  Receive Date: 20101102
  Receipt Date: 20101021
  Transmission Date: 20110411
  Serious: Yes (Hospitalization, Other)
  Sender: FDA-Public Use
  Company Number: PHHY2010DE59857

PATIENT
  Sex: Female

DRUGS (1)
  1. RITALIN LA [Suspect]
     Dosage: 30 MG/ DAY
     Route: 048

REACTIONS (6)
  - BLOOD CREATININE INCREASED [None]
  - HYPOVOLAEMIA [None]
  - PYELONEPHRITIS [None]
  - PYREXIA [None]
  - RENAL FAILURE [None]
  - URINARY TRACT INFECTION BACTERIAL [None]
